FAERS Safety Report 16565096 (Version 2)
Quarter: 2019Q3

REPORT INFORMATION
  Report Type: Spontaneous
  Country: US (occurrence: US)
  Receive Date: 20190712
  Receipt Date: 20190716
  Transmission Date: 20191004
  Serious: Yes (Life-Threatening, Hospitalization, Other)
  Sender: FDA-Public Use
  Company Number: US-DRREDDYS-USA/USA/19/0111916

PATIENT
  Age: 29 Year
  Sex: Male

DRUGS (9)
  1. VENLAFAXINE HYDROCHLORIDE. [Suspect]
     Active Substance: VENLAFAXINE HYDROCHLORIDE
     Indication: DEPRESSION
     Dosage: EXTENDED RELEASE
     Route: 048
  2. METHYLENE BLUE. [Interacting]
     Active Substance: METHYLENE BLUE
     Indication: PROPHYLAXIS
     Route: 042
  3. ONDANSETRON [Concomitant]
     Active Substance: ONDANSETRON
     Indication: NAUSEA
     Dosage: EVERY 6 HOURS AS REQUIRED
     Route: 065
  4. METOCLOPRAMIDE. [Concomitant]
     Active Substance: METOCLOPRAMIDE
     Indication: NAUSEA
  5. IFOSFAMIDE. [Concomitant]
     Active Substance: IFOSFAMIDE
     Indication: FIBROSARCOMA
     Dosage: HIGH-DOSE
  6. MORPHINE [Concomitant]
     Active Substance: MORPHINE
     Indication: PAIN
     Route: 065
  7. THIAMINE. [Concomitant]
     Active Substance: THIAMINE
     Indication: PROPHYLAXIS
     Route: 065
  8. ESOMEPRAZOLE. [Concomitant]
     Active Substance: ESOMEPRAZOLE MAGNESIUM
     Indication: PRODUCT USED FOR UNKNOWN INDICATION
     Route: 065
  9. DEXAMETHASONE. [Concomitant]
     Active Substance: DEXAMETHASONE
     Indication: FIBROSARCOMA
     Route: 065

REACTIONS (2)
  - Serotonin syndrome [Recovered/Resolved]
  - Drug interaction [Recovered/Resolved]
